FAERS Safety Report 9429635 (Version 1)
Quarter: 2013Q3

REPORT INFORMATION
  Report Type: Spontaneous
  Country: US (occurrence: US)
  Receive Date: 20130730
  Receipt Date: 20130730
  Transmission Date: 20140515
  Serious: No
  Sender: FDA-Public Use
  Company Number: US-ABBOTT-13P-163-1042812-00

PATIENT
  Age: 69 Year
  Sex: Female
  Weight: 47.67 kg

DRUGS (4)
  1. NIASPAN (COATED) [Suspect]
     Indication: BLOOD CHOLESTEROL INCREASED
     Dates: start: 20121219, end: 20130118
  2. NIASPAN (COATED) [Suspect]
     Dates: start: 20130119
  3. ASPIRIN [Concomitant]
     Indication: DRUG THERAPY
     Dates: start: 20121219
  4. LETROZOLE [Concomitant]
     Indication: BREAST CANCER
     Dates: start: 2007

REACTIONS (4)
  - Nausea [Recovered/Resolved]
  - Headache [Recovered/Resolved]
  - Burning sensation [Not Recovered/Not Resolved]
  - Rash [Not Recovered/Not Resolved]
